FAERS Safety Report 4563415-7 (Version None)
Quarter: 2005Q1

REPORT INFORMATION
  Report Type: 
  Country: None (occurrence: None)
  Receive Date: 20050128
  Receipt Date: 20040421
  Transmission Date: 20050727
  Serious: No
  Sender: FDA-Public Use
  Company Number: US-GLAXOSMITHKLINE-A0507885A

PATIENT
  Age: 85 Year
  Sex: Female

DRUGS (10)
  1. WELLBUTRIN [Suspect]
     Indication: DRUG USE FOR UNKNOWN INDICATION
     Dosage: 200MG THREE TIMES PER DAY
     Route: 048
  2. ASPIRIN [Concomitant]
     Route: 065
  3. DURAGESIC [Concomitant]
     Route: 065
  4. SYNTHROID [Concomitant]
     Route: 065
  5. PROZAC [Concomitant]
     Route: 065
  6. MEGACE [Concomitant]
     Route: 065
  7. ATIVAN [Concomitant]
     Route: 065
  8. NEURONTIN [Concomitant]
     Route: 065
  9. ZANTAC [Concomitant]
     Route: 065
  10. ATIVAN [Concomitant]
     Route: 065

REACTIONS (3)
  - LETHARGY [None]
  - MEDICATION ERROR [None]
  - PHARMACEUTICAL PRODUCT COMPLAINT [None]
